FAERS Safety Report 8524069-8 (Version None)
Quarter: 2012Q2

REPORT INFORMATION
  Report Type: 
  Country: None (occurrence: None)
  Receive Date: 20120406
  Receipt Date: 20111209
  Transmission Date: 20120825
  Serious: Yes (Hospitalization, Other)
  Sender: FDA-Public Use
  Company Number: US-CYPR-2011-000070

PATIENT
  Sex: Female
  Weight: 93.8946 kg

DRUGS (12)
  1. ASPIRIN [Suspect]
     Indication: CORONARY ARTERY DISEASE
     Dosage: 81 MG QD ORAL
     Route: 048
     Dates: start: 20100213
  2. SIMVASTATIN [Concomitant]
  3. CYPHER STENT [Concomitant]
  4. MOBIC [Concomitant]
  5. LASIX [Concomitant]
  6. POTASSIUM CHLORIDE [Concomitant]
  7. TOPROL-XL [Concomitant]
  8. TRIAMTERENE [Concomitant]
  9. CLOPIDOGREL OR PLACEBO 75 MG (BRISTOL-MYERS SQUIBBS/SANOFI-AVENTIS) [Suspect]
     Indication: ANTIPLATELET THERAPY
     Dosage: 75 MG QD ORAL
     Route: 048
     Dates: start: 20110223, end: 20111209
  10. AMARYL [Concomitant]
  11. LOSARTAN POTASSIUM [Concomitant]
  12. AMBIEN [Concomitant]

REACTIONS (1)
  - CORONARY ARTERY STENOSIS [None]
